FAERS Safety Report 26135161 (Version 1)
Quarter: 2025Q4

REPORT INFORMATION
  Report Type: Spontaneous
  Country: JP (occurrence: JP)
  Receive Date: 20251209
  Receipt Date: 20251209
  Transmission Date: 20260117
  Serious: Yes (Hospitalization)
  Sender: OTSUKA
  Company Number: JP-MMM-Otsuka-AEZV8XQ5

PATIENT
  Age: 9 Decade
  Sex: Male

DRUGS (2)
  1. REXULTI [Suspect]
     Active Substance: BREXPIPRAZOLE
     Indication: Product used for unknown indication
     Dosage: UNK
     Route: 065
  2. REXULTI [Suspect]
     Active Substance: BREXPIPRAZOLE
     Dosage: UNK (REDUCED)
     Route: 065

REACTIONS (1)
  - Depressed level of consciousness [Recovering/Resolving]
